FAERS Safety Report 6958711-X (Version None)
Quarter: 2010Q3

REPORT INFORMATION
  Report Type: 
  Country: None (occurrence: None)
  Receive Date: 20100831
  Receipt Date: 20100817
  Transmission Date: 20110219
  Serious: Yes (Hospitalization, Other)
  Sender: FDA-Public Use
  Company Number: PHHY2010JP54799

PATIENT
  Sex: Male
  Weight: 80 kg

DRUGS (15)
  1. ICL670A ICL+DISTAB [Suspect]
     Indication: IRON OVERLOAD
     Dosage: 1500 MG DAILY
     Route: 048
     Dates: start: 20081226, end: 20090116
  2. ICL670A ICL+DISTAB [Suspect]
     Dosage: 1500 MG DAILY
     Route: 048
     Dates: start: 20090127, end: 20090403
  3. NEORAL [Suspect]
     Indication: MYELODYSPLASTIC SYNDROME
     Dosage: 250 MG DAILY
     Route: 048
     Dates: start: 20070406, end: 20090413
  4. ALOSITOL [Concomitant]
     Dosage: 200 MG
     Route: 048
     Dates: start: 20070608
  5. URSO 250 [Concomitant]
     Dosage: 400 MG
     Route: 048
     Dates: start: 20070608, end: 20090207
  6. VANCOMIN [Concomitant]
     Dosage: 1500 MG
     Route: 048
     Dates: start: 20080624
  7. GARENOXACIN [Concomitant]
     Dosage: 400 MG
     Route: 048
     Dates: start: 20090112, end: 20090115
  8. ENTOMOL [Concomitant]
     Dosage: 300 MG
     Route: 048
     Dates: start: 20090112, end: 20090115
  9. LAC B [Concomitant]
     Dosage: 3 GM
     Route: 048
     Dates: start: 20090116, end: 20090121
  10. MUCOSTA [Concomitant]
     Dosage: 300 MG
     Route: 048
     Dates: start: 20090116, end: 20090124
  11. STROCAIN [Concomitant]
     Dosage: 30 MG
     Dates: start: 20090116, end: 20090124
  12. FOSMICIN [Concomitant]
     Dosage: 3 GM
     Route: 048
     Dates: start: 20090116, end: 20090124
  13. RED BLOOD CELLS [Concomitant]
     Dosage: 2 UNITS EVERY TWO WEEKS
     Dates: start: 20081226, end: 20090105
  14. RED BLOOD CELLS [Concomitant]
     Dosage: 2 UNITS THREE TIMES A WEEK
     Dates: start: 20090114, end: 20090126
  15. RED BLOOD CELLS [Concomitant]
     Dosage: 2 UNITS EVERY WEEK
     Dates: start: 20090213, end: 20090220

REACTIONS (4)
  - ENTERITIS INFECTIOUS [None]
  - HAEMATOCHEZIA [None]
  - RENAL DISORDER [None]
  - STEM CELL TRANSPLANT [None]
